FAERS Safety Report 7321092-6 (Version None)
Quarter: 2011Q1

REPORT INFORMATION
  Report Type: 
  Country: None (occurrence: None)
  Receive Date: 20110228
  Receipt Date: 20110217
  Transmission Date: 20110831
  Serious: Yes (Life-Threatening)
  Sender: FDA-Public Use
  Company Number: RO-JNJFOC-20110200933

PATIENT
  Sex: Female
  Weight: 92 kg

DRUGS (6)
  1. HYDROCORTISONE HEMISUCCINATE [Concomitant]
     Indication: PREMEDICATION
     Route: 042
  2. REMICADE [Suspect]
     Indication: RHEUMATOID ARTHRITIS
     Route: 042
  3. METHOTREXATE [Concomitant]
     Indication: RHEUMATOID ARTHRITIS
     Route: 030
  4. REMICADE [Suspect]
     Route: 042
  5. FOLIC ACID [Concomitant]
     Indication: PROPHYLAXIS
     Route: 065
  6. DICLOFENAC [Concomitant]
     Indication: RHEUMATOID ARTHRITIS
     Route: 048

REACTIONS (8)
  - INFUSION RELATED REACTION [None]
  - PALPITATIONS [None]
  - SINUS BRADYCARDIA [None]
  - RASH [None]
  - CYANOSIS [None]
  - ABDOMINAL PAIN UPPER [None]
  - HYPERTENSION [None]
  - HYPOTENSION [None]
